FAERS Safety Report 8620602-6 (Version None)
Quarter: 2012Q3

REPORT INFORMATION
  Report Type: 
  Country: None (occurrence: None)
  Receive Date: 20120816
  Receipt Date: 20120816
  Transmission Date: 20120928
  Serious: Yes (Hospitalization)
  Sender: FDA-Public Use
  Company Number: None

PATIENT
  Sex: Male
  Weight: 65 kg

DRUGS (1)
  1. TEMOZOLOMIDE [Suspect]
     Dosage: 3420 MG, ORAL
     Route: 048

REACTIONS (2)
  - THROMBOCYTOPENIA [None]
  - INTRACRANIAL PRESSURE INCREASED [None]
